FAERS Safety Report 4517668-1 (Version None)
Quarter: 2004Q4

REPORT INFORMATION
  Report Type: 
  Country: None (occurrence: None)
  Receive Date: 20041203
  Receipt Date: 20041124
  Transmission Date: 20050328
  Serious: Yes (Other)
  Sender: FDA-Public Use
  Company Number: CA-JNJFOC-20041106367

PATIENT
  Sex: Female

DRUGS (1)
  1. TYLENOL W/ CODEINE NO. 3 [Suspect]
     Indication: PAIN
     Route: 049

REACTIONS (4)
  - DYSKINESIA [None]
  - HEAD INJURY [None]
  - PARALYSIS [None]
  - SYNCOPE [None]
